FAERS Safety Report 8890899 (Version 6)
Quarter: 2013Q3

REPORT INFORMATION
  Report Type: Report from Study
  Country: CA (occurrence: CA)
  Receive Date: 20121107
  Receipt Date: 20130820
  Transmission Date: 20140515
  Serious: Yes (Other)
  Sender: FDA-Public Use
  Company Number: CA-ROCHE-1104809

PATIENT
  Age: 54 Year
  Sex: Female
  Weight: 101 kg

DRUGS (8)
  1. ACTEMRA [Suspect]
     Indication: RHEUMATOID ARTHRITIS
     Route: 042
     Dates: start: 20100920, end: 20121015
  2. ACTEMRA [Suspect]
     Route: 042
     Dates: start: 20101018
  3. ACTEMRA [Suspect]
     Route: 042
     Dates: start: 20110405
  4. ACTEMRA [Suspect]
     Route: 042
     Dates: start: 20110628
  5. ATENOLOL [Concomitant]
  6. HYDROCHLOROTHIAZIDE [Concomitant]
  7. APO-ENALAPRIL [Concomitant]
     Indication: HYPERTENSION
  8. ARAVA [Concomitant]
     Dosage: (DMARD)
     Route: 065

REACTIONS (14)
  - Neoplasm malignant [Not Recovered/Not Resolved]
  - Recurring skin boils [Not Recovered/Not Resolved]
  - Hepatic mass [Not Recovered/Not Resolved]
  - Abdominal discomfort [Recovered/Resolved]
  - Pallor [Not Recovered/Not Resolved]
  - Fatigue [Not Recovered/Not Resolved]
  - Kidney infection [Not Recovered/Not Resolved]
  - Hypertension [Recovered/Resolved]
  - Blood cholesterol increased [Unknown]
  - Alanine aminotransferase increased [Recovered/Resolved]
  - Low density lipoprotein increased [Unknown]
  - Staphylococcal infection [Recovered/Resolved]
  - Weight increased [Not Recovered/Not Resolved]
  - Fatigue [Not Recovered/Not Resolved]
